FAERS Safety Report 5018244-7 (Version None)
Quarter: 2006Q2

REPORT INFORMATION
  Report Type: 
  Country: None (occurrence: None)
  Receive Date: 20060530
  Receipt Date: 20060518
  Transmission Date: 20061013
  Serious: Yes (Death, Other)
  Sender: FDA-Public Use
  Company Number: 2006066102

PATIENT
  Sex: Male

DRUGS (1)
  1. VIAGRA [Suspect]
     Indication: ILL-DEFINED DISORDER
     Dosage: 300 MG (AS NECESSARY), ORAL
     Route: 048

REACTIONS (2)
  - CARDIAC ARREST [None]
  - TREATMENT NONCOMPLIANCE [None]
